FAERS Safety Report 4723387-9 (Version None)
Quarter: 2005Q3

REPORT INFORMATION
  Report Type: 
  Country: None (occurrence: None)
  Receive Date: 20050719
  Receipt Date: 20041103
  Transmission Date: 20060218
  Serious: Yes (Hospitalization)
  Sender: FDA-Public Use
  Company Number: 207274

PATIENT
  Age: 42 Year
  Sex: Female
  Weight: 58.9676 kg

DRUGS (2)
  1. AVONEX [Suspect]
     Indication: MULTIPLE SCLEROSIS
     Dosage: 30 UG; QW; IM
     Route: 030
     Dates: start: 20010101, end: 20030801
  2. AVONEX [Suspect]
     Indication: MULTIPLE SCLEROSIS
     Dosage: 30 UG; QW; IM
     Route: 030
     Dates: start: 20030801, end: 20040201

REACTIONS (5)
  - DEPRESSION [None]
  - INFLUENZA LIKE ILLNESS [None]
  - INJECTION SITE MASS [None]
  - MENORRHAGIA [None]
  - MULTIPLE SCLEROSIS RELAPSE [None]
